FAERS Safety Report 14225908 (Version 9)
Quarter: 2018Q4

REPORT INFORMATION
  Report Type: Report from Study
  Country: US (occurrence: US)
  Receive Date: 20171127
  Receipt Date: 20181126
  Transmission Date: 20190204
  Serious: Yes (Other)
  Sender: FDA-Public Use
  Company Number: US-BRISTOL-MYERS SQUIBB COMPANY-BMS-2017-106939

PATIENT
  Sex: Female

DRUGS (4)
  1. DASATINIB. [Suspect]
     Active Substance: DASATINIB
     Indication: ACUTE LYMPHOCYTIC LEUKAEMIA
     Dosage: 50 MG, QD
     Route: 048
     Dates: start: 20171001
  2. DHEA [Concomitant]
     Active Substance: PRASTERONE
     Indication: PRODUCT USED FOR UNKNOWN INDICATION
     Route: 065
  3. VITAMIN B12 [Concomitant]
     Active Substance: CYANOCOBALAMIN
     Indication: PRODUCT USED FOR UNKNOWN INDICATION
     Route: 065
  4. DEXAMETHASONE. [Concomitant]
     Active Substance: DEXAMETHASONE
     Indication: PRODUCT USED FOR UNKNOWN INDICATION
     Route: 065

REACTIONS (21)
  - Gingival bleeding [Unknown]
  - Acne [Unknown]
  - Lacrimation increased [Unknown]
  - Hepatic cirrhosis [Unknown]
  - Fall [Unknown]
  - Ocular hyperaemia [Unknown]
  - Fatigue [Unknown]
  - Tooth disorder [Unknown]
  - Rash papular [Unknown]
  - Pruritus [Unknown]
  - Dry eye [Unknown]
  - Underdose [Unknown]
  - Dry skin [Unknown]
  - Paraesthesia [Unknown]
  - Gingival recession [Unknown]
  - Wound haemorrhage [Unknown]
  - Bone pain [Unknown]
  - Erythema of eyelid [Unknown]
  - Rash macular [Unknown]
  - Eye swelling [Unknown]
  - Vitamin B12 decreased [Unknown]
